FAERS Safety Report 7718398-5 (Version None)
Quarter: 2011Q3

REPORT INFORMATION
  Report Type: 
  Country: None (occurrence: None)
  Receive Date: 20110830
  Receipt Date: 20110822
  Transmission Date: 20111222
  Serious: Yes (Other)
  Sender: FDA-Public Use
  Company Number: PHHY2011DE33792

PATIENT
  Sex: Male
  Weight: 128 kg

DRUGS (3)
  1. SANDOSTATIN LAR [Suspect]
     Indication: NEUROENDOCRINE TUMOUR
     Dosage: 30 MG, UNK
     Route: 030
     Dates: start: 20110321
  2. BETA BLOCKING AGENTS [Concomitant]
     Dosage: 20 MG, DAILY
     Route: 048
  3. CORTISONE ACETATE [Concomitant]
     Dosage: 15 MG, DAILY
     Route: 048

REACTIONS (6)
  - ABDOMINAL PAIN [None]
  - HYPOTHYROIDISM [None]
  - DIARRHOEA [None]
  - FAECES DISCOLOURED [None]
  - FLATULENCE [None]
  - WEIGHT INCREASED [None]
